FAERS Safety Report 16969469 (Version 1)
Quarter: 2019Q4

REPORT INFORMATION
  Report Type: Spontaneous
  Country: GB (occurrence: GB)
  Receive Date: 20191029
  Receipt Date: 20191029
  Transmission Date: 20200122
  Serious: Yes (Hospitalization)
  Sender: FDA-Public Use
  Company Number: GB-UCBSA-2019045094

PATIENT
  Age: 76 Year
  Sex: Female

DRUGS (9)
  1. NEUPRO [Suspect]
     Active Substance: ROTIGOTINE
     Indication: PARKINSON^S DISEASE
     Dosage: 12 MILLIGRAM
  2. SERTRALINE [Concomitant]
     Active Substance: SERTRALINE HYDROCHLORIDE
     Indication: PRODUCT USED FOR UNKNOWN INDICATION
  3. APO-GO [Suspect]
     Active Substance: APOMORPHINE
     Indication: PARKINSON^S DISEASE
     Dosage: 3 MILLIGRAM, AS NEEDED (PRN)
     Route: 058
     Dates: start: 20180704
  4. STALEVO [Concomitant]
     Active Substance: CARBIDOPA\ENTACAPONE\LEVODOPA
     Dosage: 5 DOSAGE FORM,100 9AM, 11AM, 3PM, 5PM, 9PM , DIALY
  5. OMEPRAZOLE. [Concomitant]
     Active Substance: OMEPRAZOLE
     Indication: PRODUCT USED FOR UNKNOWN INDICATION
  6. DOCUSATE [Concomitant]
     Active Substance: DOCUSATE
     Indication: PRODUCT USED FOR UNKNOWN INDICATION
  7. LAXIDO [Concomitant]
     Active Substance: POLYETHYLENE GLYCOL 3350\POTASSIUM CHLORIDE\SODIUM BICARBONATE\SODIUM CHLORIDE
     Indication: PRODUCT USED FOR UNKNOWN INDICATION
  8. STALEVO [Concomitant]
     Active Substance: CARBIDOPA\ENTACAPONE\LEVODOPA
     Indication: PARKINSON^S DISEASE
     Dosage: 150 7AM, 1PM, 7PM
  9. APO-GO [Concomitant]
     Active Substance: APOMORPHINE
     Indication: PARKINSON^S DISEASE
     Dosage: 15 MILLIGRAM, ONCE DAILY (QD)
     Route: 058

REACTIONS (3)
  - Psychotic disorder [Recovered/Resolved]
  - Dopamine dysregulation syndrome [Recovered/Resolved]
  - Agitation [Recovered/Resolved]
